FAERS Safety Report 14986631 (Version 1)
Quarter: 2018Q2

REPORT INFORMATION
  Report Type: Spontaneous
  Country: ES (occurrence: ES)
  Receive Date: 20180608
  Receipt Date: 20180608
  Transmission Date: 20180711
  Serious: Yes (Other)
  Sender: FDA-Public Use
  Company Number: ES-SUN PHARMACEUTICAL INDUSTRIES LTD-2018RR-175131

PATIENT
  Age: 35 Year
  Sex: Female
  Weight: 44 kg

DRUGS (3)
  1. LEXATIN(BROMAZEPAM) [Suspect]
     Active Substance: BROMAZEPAM
     Indication: ANXIETY
     Dosage: ()
     Route: 065
     Dates: start: 20180401
  2. ESOMEPRAZOLE [Suspect]
     Active Substance: ESOMEPRAZOLE
     Indication: CHRONIC GASTRITIS
     Dosage: 1 COMPRIMIDO AL D?A ()
     Route: 065
     Dates: start: 20111201
  3. ENANPLUS 75 MG/25 MG COMPRIMIDOS RECUBIERTOS CON PELICULA 100 COMPR... [Suspect]
     Active Substance: DEXKETOPROFEN\TRAMADOL
     Indication: MYALGIA
     Dosage: 1 COMPRIMIDO
     Route: 048
     Dates: start: 20180413

REACTIONS (5)
  - Dry mouth [Not Recovered/Not Resolved]
  - Hot flush [Not Recovered/Not Resolved]
  - Hyperhidrosis [Not Recovered/Not Resolved]
  - Insomnia [Not Recovered/Not Resolved]
  - Nervousness [Not Recovered/Not Resolved]

NARRATIVE: CASE EVENT DATE: 2018
